FAERS Safety Report 21802409 (Version 1)
Quarter: 2022Q4

REPORT INFORMATION
  Report Type: Spontaneous
  Country: US (occurrence: US)
  Receive Date: 20221231
  Receipt Date: 20221231
  Transmission Date: 20230113
  Serious: No
  Sender: FDA-Public Use
  Company Number: US-SA-SAC20221230000380

PATIENT
  Sex: Male

DRUGS (2)
  1. FLOMAX [Suspect]
     Active Substance: TAMSULOSIN HYDROCHLORIDE
     Dosage: UNK
  2. CAPLYTA [Suspect]
     Active Substance: LUMATEPERONE
     Dosage: 42 MG

REACTIONS (7)
  - Hypoaesthesia [Unknown]
  - Anxiety [Unknown]
  - Feeling cold [Unknown]
  - Restless legs syndrome [Unknown]
  - Fall [Unknown]
  - Dizziness [Unknown]
  - Orthostatic hypotension [Unknown]
